FAERS Safety Report 10222460 (Version 1)
Quarter: 2014Q2

REPORT INFORMATION
  Report Type: Spontaneous
  Country: US (occurrence: US)
  Receive Date: 20140606
  Receipt Date: 20140606
  Transmission Date: 20141212
  Serious: No
  Sender: FDA-Public Use
  Company Number: US-BAYER-2014-084343

PATIENT
  Age: 15 Year
  Sex: Female
  Weight: 54.42 kg

DRUGS (2)
  1. ALEVE TABLET [Suspect]
     Indication: DYSMENORRHOEA
     Dosage: 2 DF, PRN
     Route: 048
     Dates: start: 2014
  2. ALEVE TABLET [Suspect]
     Indication: DYSMENORRHOEA
     Dosage: 2 DF, Q4HR
     Route: 048
     Dates: start: 2014

REACTIONS (1)
  - Extra dose administered [Unknown]
